FAERS Safety Report 12540318 (Version 1)
Quarter: 2016Q3

REPORT INFORMATION
  Report Type: Spontaneous
  Country: US (occurrence: US)
  Receive Date: 20160708
  Receipt Date: 20160708
  Transmission Date: 20161109
  Serious: No
  Sender: FDA-Public Use
  Company Number: US-DSJP-DSU-2015-127001

PATIENT
  Age: 70 Year
  Sex: Female
  Weight: 81.18 kg

DRUGS (1)
  1. BENICAR HCT [Suspect]
     Active Substance: HYDROCHLOROTHIAZIDE\OLMESARTAN MEDOXOMIL
     Indication: HYPERTENSION
     Dosage: 1 TAB, QD
     Route: 048
     Dates: start: 20090203, end: 20140914

REACTIONS (6)
  - Epigastric discomfort [Unknown]
  - Emotional distress [Unknown]
  - Diverticulum [Unknown]
  - Haemorrhoids [Unknown]
  - Malabsorption [Recovered/Resolved]
  - Gastrooesophageal reflux disease [Unknown]

NARRATIVE: CASE EVENT DATE: 20100201
